FAERS Safety Report 5393334-8 (Version None)
Quarter: 2007Q3

REPORT INFORMATION
  Report Type: 
  Country: None (occurrence: None)
  Receive Date: 20070723
  Receipt Date: 20070718
  Transmission Date: 20080115
  Serious: Yes (Death, Hospitalization)
  Sender: FDA-Public Use
  Company Number: PHHO2007VE04312

PATIENT
  Age: 85 Year
  Sex: Female

DRUGS (1)
  1. DIOVAN HCT [Suspect]
     Indication: HYPERTENSION
     Dosage: 160MG/12.5MG
     Route: 048
     Dates: start: 20040101

REACTIONS (2)
  - CEREBROVASCULAR ACCIDENT [None]
  - RESPIRATORY ARREST [None]
